FAERS Safety Report 4300096-1 (Version None)
Quarter: 2004Q1

REPORT INFORMATION
  Report Type: 
  Country: None (occurrence: None)
  Receive Date: 20040219
  Receipt Date: 20040219
  Transmission Date: 20041129
  Serious: Yes (Hospitalization)
  Sender: FDA-Public Use
  Company Number: None

PATIENT
  Age: 71 Year
  Sex: Male
  Weight: 104 kg

DRUGS (6)
  1. NAPROXEN [Suspect]
     Indication: ARTHRITIS
     Dosage: 1 PO BID
     Route: 048
  2. ASPIRIN [Suspect]
     Indication: CORONARY ARTERY DISEASE
     Dosage: 1 PO BID
     Route: 048
  3. DILTIAZEM [Concomitant]
  4. FOSINOPRIL SODIUM [Concomitant]
  5. LOVASTATIN [Concomitant]
  6. METFORMIN [Concomitant]

REACTIONS (4)
  - DIARRHOEA [None]
  - FAECES DISCOLOURED [None]
  - HAEMATEMESIS [None]
  - ULCER [None]
